FAERS Safety Report 25446056 (Version 1)
Quarter: 2025Q2

REPORT INFORMATION
  Report Type: Spontaneous
  Country: US (occurrence: US)
  Receive Date: 20250617
  Receipt Date: 20250617
  Transmission Date: 20250716
  Serious: Yes (Hospitalization, Other)
  Sender: FRESENIUS KABI
  Company Number: US-FreseniusKabi-FK202508268

PATIENT
  Age: 71 Year
  Sex: Male

DRUGS (1)
  1. TRANEXAMIC ACID [Suspect]
     Active Substance: TRANEXAMIC ACID
     Indication: Shoulder arthroplasty
     Route: 042

REACTIONS (2)
  - Coronary artery thrombosis [Not Recovered/Not Resolved]
  - Cardiogenic shock [Unknown]
